FAERS Safety Report 6293107-8 (Version None)
Quarter: 2009Q3

REPORT INFORMATION
  Report Type: 
  Country: None (occurrence: None)
  Receive Date: 20090731
  Receipt Date: 20090721
  Transmission Date: 20100115
  Serious: Yes (Death)
  Sender: FDA-Public Use
  Company Number: JP-GENENTECH-287615

PATIENT
  Sex: Male
  Weight: 62.1 kg

DRUGS (12)
  1. AVASTIN [Suspect]
     Indication: COLORECTAL CANCER METASTATIC
     Dosage: 5 MG/KG, SINGLE
     Route: 041
     Dates: start: 20090608, end: 20090608
  2. ELPLAT [Suspect]
     Indication: COLORECTAL CANCER METASTATIC
     Dosage: 130 MG, SINGLE
     Route: 041
     Dates: start: 20090608, end: 20090608
  3. FLUOROURACIL [Suspect]
     Indication: COLORECTAL CANCER METASTATIC
     Dosage: 400 MG, SINGLE
     Route: 040
     Dates: start: 20090608, end: 20090608
  4. FLUOROURACIL [Suspect]
     Dosage: 4000 MG, UNK
     Route: 041
     Dates: start: 20090608, end: 20090601
  5. ISOVORIN [Suspect]
     Indication: COLORECTAL CANCER METASTATIC
     Dosage: 325 MG, SINGLE
     Route: 041
     Dates: start: 20090608, end: 20090608
  6. VOLTAREN [Concomitant]
     Indication: DRUG USE FOR UNKNOWN INDICATION
     Dosage: UNK
     Dates: start: 20090514, end: 20090619
  7. OXYCONTIN [Concomitant]
     Indication: DRUG USE FOR UNKNOWN INDICATION
     Dosage: UNK
     Dates: start: 20090525, end: 20090619
  8. ORGOTEIN [Concomitant]
     Indication: DRUG USE FOR UNKNOWN INDICATION
     Dosage: UNK
     Dates: start: 20090525, end: 20090619
  9. MAG-OX [Concomitant]
     Indication: DRUG USE FOR UNKNOWN INDICATION
     Dosage: UNK
     Dates: start: 20090525, end: 20090619
  10. LAXOBERON [Concomitant]
     Indication: DRUG USE FOR UNKNOWN INDICATION
     Dosage: UNK
     Dates: start: 20090525, end: 20090619
  11. NOVAMIN [Concomitant]
     Indication: DRUG USE FOR UNKNOWN INDICATION
     Dosage: UNK
     Dates: start: 20090525, end: 20090619
  12. CYTOTEC [Concomitant]
     Indication: DRUG USE FOR UNKNOWN INDICATION
     Dosage: UNK
     Dates: start: 20090525, end: 20090619

REACTIONS (4)
  - ALTERED STATE OF CONSCIOUSNESS [None]
  - DISSEMINATED INTRAVASCULAR COAGULATION [None]
  - MULTI-ORGAN FAILURE [None]
  - RENAL FAILURE [None]
